FAERS Safety Report 7312593-5 (Version None)
Quarter: 2011Q1

REPORT INFORMATION
  Report Type: 
  Country: None (occurrence: None)
  Receive Date: 20110224
  Receipt Date: 20110214
  Transmission Date: 20110831
  Serious: Yes (Death)
  Sender: FDA-Public Use
  Company Number: GB-VALEANT-2011VX000495

PATIENT
  Age: 54 Year
  Sex: Male

DRUGS (2)
  1. PYRIDOSTIGMINE BROMIDE [Suspect]
     Indication: MYASTHENIA GRAVIS
     Route: 065
  2. ATROPINE [Suspect]
     Indication: MYASTHENIA GRAVIS
     Route: 065

REACTIONS (3)
  - TACHYPNOEA [None]
  - TACHYCARDIA [None]
  - SUDDEN DEATH [None]
